FAERS Safety Report 12748766 (Version 1)
Quarter: 2016Q3

REPORT INFORMATION
  Report Type: Not Available
  Country: None (occurrence: US)
  Receive Date: 20160915
  Receipt Date: 20160915
  Transmission Date: 20161109
  Serious: No
  Sender: FDA-Public Use
  Company Number: US-AKORN-37141

PATIENT

DRUGS (1)
  1. TROPICAMIDE 1% OPHTHALMIC SOLUTION [Suspect]
     Active Substance: TROPICAMIDE

REACTIONS (3)
  - Drug effect prolonged [None]
  - Mydriasis [None]
  - Product quality issue [None]
